FAERS Safety Report 9333130 (Version 2)
Quarter: 2013Q2

REPORT INFORMATION
  Report Type: Spontaneous
  Country: DE (occurrence: CA)
  Receive Date: 20130606
  Receipt Date: 20130617
  Transmission Date: 20140414
  Serious: Yes (Disabling)
  Sender: FDA-Public Use
  Company Number: CA-FRI-1000045718

PATIENT
  Age: 83 Year
  Sex: Male

DRUGS (13)
  1. ROFLUMILAST [Suspect]
     Indication: CHRONIC OBSTRUCTIVE PULMONARY DISEASE
     Dosage: 500 MCG
     Route: 048
     Dates: start: 20130226, end: 20130416
  2. ASA [Concomitant]
  3. RANITIDINE [Concomitant]
  4. LASIX [Concomitant]
  5. ALLOPURINOL [Concomitant]
  6. FLOMAX [Concomitant]
  7. PLAVIX [Concomitant]
  8. SPIRIVA [Concomitant]
  9. ADVAIR [Concomitant]
  10. VENTOLIN [Concomitant]
  11. PALAFER [Concomitant]
  12. MICRO-K [Concomitant]
  13. CRESTOR [Concomitant]

REACTIONS (5)
  - Nausea [Recovered/Resolved]
  - Vomiting [Recovered/Resolved]
  - Asthenia [Recovered/Resolved]
  - Productive cough [Recovered/Resolved]
  - Feeling abnormal [Recovered/Resolved]
